FAERS Safety Report 8812882 (Version 11)
Quarter: 2014Q1

REPORT INFORMATION
  Report Type: Report from Study
  Country: DE (occurrence: DE)
  Receive Date: 20120927
  Receipt Date: 20140313
  Transmission Date: 20141002
  Serious: Yes (Hospitalization)
  Sender: FDA-Public Use
  Company Number: DE-ROCHE-1134695

PATIENT
  Age: 58 Year
  Sex: Female
  Weight: 70.4 kg

DRUGS (11)
  1. VEMURAFENIB [Suspect]
     Indication: MALIGNANT MELANOMA
     Dosage: DATE OF LAST DOSE PRIOR TO SAE: 19/SEP/2012
     Route: 048
     Dates: start: 20120725, end: 20121010
  2. VEMURAFENIB [Suspect]
     Route: 048
     Dates: start: 20111229, end: 20120712
  3. VEMURAFENIB [Suspect]
     Dosage: LAST DOSE PRIOR TO SAE: 28/OCT/2012
     Route: 048
     Dates: start: 20121016, end: 20121029
  4. VEMURAFENIB [Suspect]
     Route: 048
     Dates: start: 20121030, end: 20130220
  5. PRAVASTATIN [Concomitant]
     Route: 065
     Dates: start: 20120312
  6. PARACODEINE [Concomitant]
     Route: 065
     Dates: start: 20120223
  7. CITALOPRAM [Concomitant]
     Route: 065
     Dates: start: 20110816
  8. ZOLPIDEM [Concomitant]
     Route: 065
     Dates: start: 20120121
  9. L-THYROX [Concomitant]
     Route: 065
     Dates: start: 20120224
  10. DERMATOP CREAM [Concomitant]
     Route: 065
     Dates: start: 20120125
  11. RAMIPRIL [Concomitant]
     Route: 065
     Dates: start: 20120630

REACTIONS (1)
  - Papilloedema [Not Recovered/Not Resolved]
